FAERS Safety Report 19635002 (Version 1)
Quarter: 2021Q3

REPORT INFORMATION
  Report Type: Report from Study
  Country: US (occurrence: US)
  Receive Date: 20210730
  Receipt Date: 20210730
  Transmission Date: 20211014
  Serious: No
  Sender: FDA-Public Use
  Company Number: NVSC2021US167139

PATIENT
  Sex: Female

DRUGS (2)
  1. ENTRESTO [Suspect]
     Active Substance: SACUBITRIL\VALSARTAN
     Dosage: 50 MG, ONCE/SINGLE (24/26MG0
     Route: 048
     Dates: start: 20210601, end: 20210626
  2. ENTRESTO [Suspect]
     Active Substance: SACUBITRIL\VALSARTAN
     Indication: DIARRHOEA
     Dosage: 24 MG, BID (24MG 26MG X2)
     Route: 048
     Dates: start: 20210601, end: 20210626

REACTIONS (3)
  - Diarrhoea [Recovering/Resolving]
  - Inappropriate schedule of product administration [Recovering/Resolving]
  - Pruritus [Recovering/Resolving]

NARRATIVE: CASE EVENT DATE: 20210622
